FAERS Safety Report 8018981-6 (Version None)
Quarter: 2012Q1

REPORT INFORMATION
  Report Type: 
  Country: None (occurrence: None)
  Receive Date: 20120103
  Receipt Date: 20111229
  Transmission Date: 20120608
  Serious: Yes (Hospitalization, Other)
  Sender: FDA-Public Use
  Company Number: PL-BAYER-2011-092327

PATIENT
  Age: 71 Year
  Sex: Male
  Weight: 105 kg

DRUGS (14)
  1. BISOPROLOL FUMARATE [Concomitant]
     Indication: MYOCARDIAL ISCHAEMIA
     Dosage: 5 MG, QD
     Route: 048
     Dates: start: 20060101
  2. DOXANORM [Concomitant]
     Indication: MYOCARDIAL ISCHAEMIA
     Dosage: 4 MG, QD
     Route: 048
     Dates: start: 20060101
  3. ALLOPURINOL [Concomitant]
     Indication: PROPHYLAXIS
     Dosage: 100 MG, QD
     Route: 048
     Dates: start: 20060101
  4. PLAVIX [Concomitant]
     Indication: ACUTE MYOCARDIAL INFARCTION
     Dosage: 75 MG, QD
     Route: 048
     Dates: start: 20110227
  5. FUROSEMIDE [Concomitant]
     Indication: MYOCARDIAL ISCHAEMIA
     Dosage: 40 MG, QD
     Route: 048
     Dates: start: 20060101
  6. VESSEL DUE [Concomitant]
     Indication: PERIPHERAL ISCHAEMIA
     Dosage: 1 DF, QD
     Route: 048
     Dates: start: 20060101
  7. INSULIN HM MIXTARD [Concomitant]
     Indication: DIABETES MELLITUS
     Dosage: UNK UNK, PRN
     Route: 058
     Dates: start: 20060101
  8. DIUVER [Concomitant]
     Indication: HYPERTENSION
     Dosage: 5 MG, QD
     Route: 048
     Dates: start: 20060101
  9. PENTOHEXAL [Concomitant]
     Indication: PERIPHERAL ISCHAEMIA
     Dosage: 1 DF, QD
     Route: 048
     Dates: start: 20060101
  10. POLOCARD [Concomitant]
     Indication: MYOCARDIAL ISCHAEMIA
     Dosage: 75 MG, UNK
     Route: 048
     Dates: start: 20060101
  11. SORAFENIB (RAF KINASE INHIBITOR) [Suspect]
     Indication: METASTATIC RENAL CELL CARCINOMA
     Dosage: 400 MG, QOD
     Route: 048
     Dates: start: 20110426, end: 20110915
  12. SORAFENIB (RAF KINASE INHIBITOR) [Suspect]
     Dosage: UNK
     Dates: start: 20080605
  13. MEMOTROPIL [Concomitant]
     Indication: PROPHYLAXIS
     Dosage: 1.2 G, QD
     Route: 048
     Dates: start: 20060101
  14. DOXANORM [Concomitant]
     Indication: HYPERTENSION

REACTIONS (1)
  - FEMORAL ARTERY OCCLUSION [None]
